FAERS Safety Report 9271904 (Version 1)
Quarter: 2013Q2

REPORT INFORMATION
  Report Type: Spontaneous
  Country: US (occurrence: US)
  Receive Date: 20130506
  Receipt Date: 20130506
  Transmission Date: 20140414
  Serious: No
  Sender: FDA-Public Use
  Company Number: US-009507513-1304USA016675

PATIENT
  Age: 24 Year
  Sex: Female
  Weight: 93.88 kg

DRUGS (2)
  1. IMPLANON [Suspect]
     Indication: CONTRACEPTION
     Dosage: 1 ROD UP TO THREE YEARS
     Route: 059
     Dates: start: 20120424
  2. HYDROCHLOROTHIAZIDE [Concomitant]
     Dosage: 2.5 MG 1X

REACTIONS (3)
  - Eye swelling [Unknown]
  - Intraocular pressure increased [Unknown]
  - Hypertension [Unknown]
